FAERS Safety Report 4330212-7 (Version None)
Quarter: 2004Q1

REPORT INFORMATION
  Report Type: 
  Country: None (occurrence: None)
  Receive Date: 20040329
  Receipt Date: 20040318
  Transmission Date: 20041129
  Serious: Yes (Other)
  Sender: FDA-Public Use
  Company Number: 2000UW00909

PATIENT
  Age: 45 Year
  Sex: Female
  Weight: 68 kg

DRUGS (4)
  1. ZOMIG [Suspect]
  2. DEMEROL [Suspect]
  3. CLONAZEPAM [Concomitant]
  4. EFFEXOR [Concomitant]

REACTIONS (6)
  - HEADACHE [None]
  - MUSCLE TIGHTNESS [None]
  - PALPITATIONS [None]
  - PHOTOPHOBIA [None]
  - PYREXIA [None]
  - SEROTONIN SYNDROME [None]
